FAERS Safety Report 15745174 (Version 2)
Quarter: 2019Q1

REPORT INFORMATION
  Report Type: Spontaneous
  Country: US (occurrence: US)
  Receive Date: 20181220
  Receipt Date: 20190118
  Transmission Date: 20190417
  Serious: Yes (Other)
  Sender: FDA-Public Use
  Company Number: US-RIGEL PHARMACEUTICALS, INC.-2018FOS000229

PATIENT

DRUGS (3)
  1. TAVALISSE [Suspect]
     Active Substance: FOSTAMATINIB
     Indication: WHITE BLOOD CELL COUNT DECREASED
  2. TAVALISSE [Suspect]
     Active Substance: FOSTAMATINIB
     Indication: THROMBOCYTOPENIA
     Dosage: 100 MG, BID
     Route: 048
     Dates: start: 20181110
  3. TAVALISSE [Suspect]
     Active Substance: FOSTAMATINIB
     Indication: LEUKOPENIA

REACTIONS (7)
  - Haematochezia [Unknown]
  - Muscular weakness [Unknown]
  - Peripheral swelling [Unknown]
  - Off label use [Unknown]
  - Erythema [Unknown]
  - Diarrhoea [Unknown]
  - Rash [Unknown]

NARRATIVE: CASE EVENT DATE: 20181204
